FAERS Safety Report 9422415 (Version 2)
Quarter: 2013Q3

REPORT INFORMATION
  Report Type: Spontaneous
  Country: JP (occurrence: JP)
  Receive Date: 20130726
  Receipt Date: 20130807
  Transmission Date: 20140515
  Serious: Yes (Other)
  Sender: FDA-Public Use
  Company Number: JP-SANOFI-AVENTIS-2013SA074708

PATIENT
  Age: 56 Year
  Sex: Female

DRUGS (3)
  1. DELLEGRA [Suspect]
     Indication: RHINITIS ALLERGIC
     Route: 048
     Dates: start: 20130717, end: 20130719
  2. ADETPHOS [Concomitant]
  3. ALLERMIST [Concomitant]
     Dosage: NASAL SPRAY
     Route: 045

REACTIONS (1)
  - Urinary retention [Recovered/Resolved]
